FAERS Safety Report 8055626-3 (Version None)
Quarter: 2012Q1

REPORT INFORMATION
  Report Type: 
  Country: None (occurrence: None)
  Receive Date: 20120119
  Receipt Date: 20111221
  Transmission Date: 20120608
  Serious: Yes (Hospitalization)
  Sender: FDA-Public Use
  Company Number: SE-UCBSA-048292

PATIENT
  Age: 53 Year
  Sex: Male

DRUGS (6)
  1. CIMZIA [Suspect]
     Indication: RHEUMATOID ARTHRITIS
     Dosage: 200 MG
     Route: 058
     Dates: start: 20110405, end: 20110614
  2. FOLIC ACID [Concomitant]
  3. ORUDIS [Concomitant]
  4. OMEPRAZOLE [Concomitant]
  5. PREDNISOLONE [Concomitant]
  6. METHOTREXATE [Concomitant]

REACTIONS (4)
  - SYNOVIAL RUPTURE [None]
  - FALL [None]
  - ABSCESS [None]
  - ARTHRITIS BACTERIAL [None]
